FAERS Safety Report 8582429-3 (Version None)
Quarter: 2012Q3

REPORT INFORMATION
  Report Type: 
  Country: None (occurrence: None)
  Receive Date: 20120809
  Receipt Date: 20120802
  Transmission Date: 20120928
  Serious: Yes (Other)
  Sender: FDA-Public Use
  Company Number: BR-GLAXOSMITHKLINE-B0820606A

PATIENT
  Sex: Male
  Weight: 80 kg

DRUGS (3)
  1. LEVOTHYROXINE SODIUM [Concomitant]
     Indication: HYPOTHYROIDISM
     Dosage: 88MCG PER DAY
     Route: 048
  2. BETAHISTINE [Concomitant]
     Indication: LABYRINTHITIS
     Dosage: 1TAB PER DAY
     Route: 048
  3. PROPAFENONE HCL [Suspect]
     Indication: TACHYCARDIA
     Dosage: 300MG TWICE PER DAY
     Route: 048
     Dates: end: 20120601

REACTIONS (6)
  - PROSTATE CANCER [None]
  - CARDIAC OUTPUT DECREASED [None]
  - PROSTATIC SPECIFIC ANTIGEN INCREASED [None]
  - HYPOTHYROIDISM [None]
  - LABYRINTHITIS [None]
  - SCROTAL PAIN [None]
